FAERS Safety Report 24672819 (Version 11)
Quarter: 2025Q4

REPORT INFORMATION
  Report Type: Report from Study
  Country: US (occurrence: US)
  Receive Date: 20241128
  Receipt Date: 20251105
  Transmission Date: 20260117
  Serious: Yes (Other)
  Sender: TAKEDA
  Company Number: US-TAKEDA-2022TUS080918

PATIENT
  Sex: Female
  Weight: 83 kg

DRUGS (32)
  1. GLASSIA [Suspect]
     Active Substance: .ALPHA.1-PROTEINASE INHIBITOR HUMAN
     Indication: Alpha-1 antitrypsin deficiency
     Dosage: UNK UNK, 1/WEEK
  2. GLASSIA [Suspect]
     Active Substance: .ALPHA.1-PROTEINASE INHIBITOR HUMAN
     Indication: Immune system disorder
     Dosage: 60 MILLIGRAM/KILOGRAM, 1/WEEK
  3. GLASSIA [Suspect]
     Active Substance: .ALPHA.1-PROTEINASE INHIBITOR HUMAN
     Indication: Hypergammaglobulinaemia
     Dosage: 60 MILLIGRAM/KILOGRAM, Q2WEEKS
  4. CUVITRU [Suspect]
     Active Substance: HUMAN IMMUNOGLOBULIN G
     Indication: Hypergammaglobulinaemia
     Dosage: 10 GRAM, 1/WEEK
  5. CUVITRU [Suspect]
     Active Substance: HUMAN IMMUNOGLOBULIN G
     Indication: Immune system disorder
  6. ALBUTEROL [Concomitant]
     Active Substance: ALBUTEROL
     Dosage: UNK
  7. Nac [Concomitant]
     Dosage: UNK
  8. ZYRTEC [Concomitant]
     Active Substance: CETIRIZINE HYDROCHLORIDE
     Dosage: UNK
  9. DIPHENHYDRAMINE HYDROCHLORIDE [Concomitant]
     Active Substance: DIPHENHYDRAMINE HYDROCHLORIDE
     Dosage: UNK
  10. HEPARIN [Concomitant]
     Active Substance: HEPARIN SODIUM
     Dosage: UNK
  11. IBUPROFEN [Concomitant]
     Active Substance: IBUPROFEN
     Indication: Premedication
     Dosage: UNK
  12. LIDOCAINE AND PRILOCAINE [Concomitant]
     Active Substance: LIDOCAINE\PRILOCAINE
     Dosage: UNK
  13. SODIUM CHLORIDE [Concomitant]
     Active Substance: SODIUM CHLORIDE
     Dosage: UNK
  14. EPINEPHRINE [Concomitant]
     Active Substance: EPINEPHRINE
     Dosage: UNK
  15. AMOXICILLIN AND CLAVULANATE POTASSIUM [Concomitant]
     Active Substance: AMOXICILLIN\CLAVULANATE POTASSIUM
     Dosage: UNK
  16. ADVAIR HFA [Concomitant]
     Active Substance: FLUTICASONE PROPIONATE\SALMETEROL XINAFOATE
     Dosage: UNK
  17. CUTAQUIG [Concomitant]
     Active Substance: HUMAN IMMUNOGLOBULIN G
     Dosage: UNK
  18. Lmx [Concomitant]
     Dosage: UNK
  19. CETIRIZINE [Concomitant]
     Active Substance: CETIRIZINE HYDROCHLORIDE
     Dosage: UNK
  20. ALBUTEROL SULFATE [Concomitant]
     Active Substance: ALBUTEROL SULFATE
     Dosage: UNK
  21. CETIRIZINE HCL [Concomitant]
     Active Substance: CETIRIZINE HYDROCHLORIDE
     Dosage: UNK
  22. SPIRIVA RESPIMAT [Concomitant]
     Active Substance: TIOTROPIUM BROMIDE
     Dosage: UNK
  23. AUGMENTIN [Concomitant]
     Active Substance: AMOXICILLIN\CLAVULANATE POTASSIUM
     Dosage: UNK
  24. MELOXICAM [Concomitant]
     Active Substance: MELOXICAM
     Dosage: UNK
  25. CLINDAMYCIN HYDROCHLORIDE [Concomitant]
     Active Substance: CLINDAMYCIN HYDROCHLORIDE
     Dosage: UNK
  26. LIDOCAINE [Concomitant]
     Active Substance: LIDOCAINE
     Dosage: UNK
  27. VITAMIN D [Concomitant]
     Active Substance: VITAMIN D NOS
     Dosage: UNK
  28. SODIUM CHLORIDE [Concomitant]
     Active Substance: SODIUM CHLORIDE
     Dosage: UNK
  29. SYNTHROID [Concomitant]
     Active Substance: LEVOTHYROXINE SODIUM
     Dosage: UNK
  30. MIRENA [Concomitant]
     Active Substance: LEVONORGESTREL
     Dosage: UNK
  31. VITAMIN D3 [Concomitant]
     Active Substance: CHOLECALCIFEROL
     Dosage: UNK
  32. ALBUTEROL SULFATE [Concomitant]
     Active Substance: ALBUTEROL SULFATE
     Dosage: UNK

REACTIONS (21)
  - Autoimmune thyroiditis [Unknown]
  - COVID-19 [Recovering/Resolving]
  - Dermatitis contact [Unknown]
  - Product dose omission issue [Unknown]
  - Fungal infection [Unknown]
  - Urinary tract infection [Unknown]
  - Weight decreased [Unknown]
  - Liver disorder [Unknown]
  - Product use issue [Unknown]
  - Infection [Unknown]
  - Product distribution issue [Unknown]
  - Dyspnoea exertional [Unknown]
  - Wheezing [Unknown]
  - Breath sounds abnormal [Unknown]
  - Illness [Unknown]
  - Memory impairment [Unknown]
  - Sinusitis [Unknown]
  - Bronchitis [Unknown]
  - Fatigue [Unknown]
  - Upper respiratory tract infection [Unknown]
  - Headache [Unknown]

NARRATIVE: CASE EVENT DATE: 20240201
